FAERS Safety Report 7778917 (Version 3)
Quarter: 2013Q2

REPORT INFORMATION
  Report Type: Report from Study
  Country: HU (occurrence: HU)
  Receive Date: 20110128
  Receipt Date: 20130605
  Transmission Date: 20140414
  Serious: Yes (Death)
  Sender: FDA-Public Use
  Company Number: HU-ELI_LILLY_AND_COMPANY-HU201101002224

PATIENT
  Age: 55 Year
  Sex: Female
  Weight: 50 kg

DRUGS (8)
  1. GEMCITABINE HYDROCHLORIDE [Suspect]
     Indication: NON-SMALL CELL LUNG CANCER
     Dosage: 1875 MG, UNK
     Dates: start: 20101229
  2. CISPLATIN [Suspect]
     Indication: NON-SMALL CELL LUNG CANCER
     Dosage: 110 MG, UNK
     Dates: start: 20101229
  3. CERUCAL [Concomitant]
     Indication: PROPHYLAXIS OF NAUSEA AND VOMITING
     Dosage: UNK, UNK
     Dates: start: 20101125, end: 20110109
  4. QUAMATEL [Concomitant]
     Indication: PROPHYLAXIS
     Dates: start: 20101125, end: 20110109
  5. DICLAC                             /00372302/ [Concomitant]
     Indication: PROPHYLAXIS
     Dates: start: 20101125, end: 20110109
  6. ATORIS [Concomitant]
     Indication: PROPHYLAXIS
     Dates: start: 20101125, end: 20110109
  7. BETALOC ZOK [Concomitant]
     Indication: PROPHYLAXIS
     Dates: start: 20101228, end: 20110109
  8. EMETRON [Concomitant]
     Indication: PROPHYLAXIS

REACTIONS (1)
  - Acute respiratory failure [Fatal]
